FAERS Safety Report 12874790 (Version 2)
Quarter: 2017Q2

REPORT INFORMATION
  Report Type: Report from Study
  Country: JP (occurrence: JP)
  Receive Date: 20161022
  Receipt Date: 20170411
  Transmission Date: 20170830
  Serious: Yes (Death, Other)
  Sender: FDA-Public Use
  Company Number: JP-AMGEN-JPNNI2016146897

PATIENT
  Age: 77 Year
  Sex: Male
  Weight: 48 kg

DRUGS (7)
  1. METHOTREXATE. [Suspect]
     Active Substance: METHOTREXATE
     Indication: TRANSITIONAL CELL CARCINOMA
     Dosage: 30 MG/M2, UNK
     Route: 042
     Dates: start: 20160203, end: 20160203
  2. MEROPENEM. [Concomitant]
     Active Substance: MEROPENEM
     Indication: FEBRILE NEUTROPENIA
     Dosage: UNK
     Route: 041
  3. EXAL [Suspect]
     Active Substance: VINBLASTINE SULFATE
     Indication: TRANSITIONAL CELL CARCINOMA
     Dosage: 3 MG/M2, UNK
     Route: 041
     Dates: start: 20160204, end: 20160204
  4. PEGFILGRASTIM [Suspect]
     Active Substance: PEGFILGRASTIM
     Indication: COLONY STIMULATING FACTOR PROPHYLAXIS
     Dosage: 3.6 MG, Q2WK
     Route: 058
     Dates: start: 20160205, end: 20160205
  5. PREPENON [Concomitant]
     Active Substance: MORPHINE HYDROCHLORIDE
     Dosage: UNK
     Route: 065
  6. ADRIACIN [Suspect]
     Active Substance: DOXORUBICIN HYDROCHLORIDE
     Indication: TRANSITIONAL CELL CARCINOMA
     Dosage: 30 MG/M2, UNK
     Route: 041
     Dates: start: 20160204, end: 20160204
  7. CISPLATIN. [Suspect]
     Active Substance: CISPLATIN
     Indication: TRANSITIONAL CELL CARCINOMA
     Dosage: 70 MG/M2, UNK
     Route: 041
     Dates: start: 20160204, end: 20160204

REACTIONS (2)
  - Febrile neutropenia [Recovered/Resolved]
  - Cerebral infarction [Fatal]

NARRATIVE: CASE EVENT DATE: 20160212
